FAERS Safety Report 5735693-X (Version None)
Quarter: 2008Q2

REPORT INFORMATION
  Report Type: 
  Country: None (occurrence: None)
  Receive Date: 20080512
  Receipt Date: 20080506
  Transmission Date: 20081010
  Serious: Yes (Hospitalization)
  Sender: FDA-Public Use
  Company Number: FR-MERCK-0805FRA00032

PATIENT
  Age: 21 Year
  Sex: Male

DRUGS (2)
  1. INVANZ [Suspect]
     Indication: DOUGLAS' ABSCESS
     Route: 042
     Dates: start: 20070805, end: 20070808
  2. ORNIDAZOLE [Concomitant]
     Indication: DOUGLAS' ABSCESS
     Route: 065
     Dates: start: 20070805, end: 20070808

REACTIONS (5)
  - CHILLS [None]
  - HEADACHE [None]
  - HYPOXIA [None]
  - MALAISE [None]
  - SHOCK [None]
